FAERS Safety Report 12342640 (Version 2)
Quarter: 2016Q2

REPORT INFORMATION
  Report Type: Spontaneous
  Country: FR (occurrence: FR)
  Receive Date: 20160506
  Receipt Date: 20160511
  Transmission Date: 20160815
  Serious: Yes (Life-Threatening, Hospitalization)
  Sender: FDA-Public Use
  Company Number: FR-ASTRAZENECA-2016SE47329

PATIENT
  Age: 24502 Day
  Sex: Female

DRUGS (15)
  1. HALDOL [Suspect]
     Active Substance: HALOPERIDOL
     Dosage: 2 MG/ML, 40 DROPS PER DAY
     Route: 048
  2. ESOMEPRAZOLE MAGNESIUM. [Suspect]
     Active Substance: ESOMEPRAZOLE MAGNESIUM
     Route: 048
     Dates: end: 20160320
  3. CRESTOR [Suspect]
     Active Substance: ROSUVASTATIN CALCIUM
     Route: 048
     Dates: end: 20160320
  4. PROPRANOLOL [Suspect]
     Active Substance: PROPRANOLOL\PROPRANOLOL HYDROCHLORIDE
     Route: 048
  5. LARGACTIL [Suspect]
     Active Substance: CHLORPROMAZINE
     Dosage: 50 DROPS PER DAY
     Route: 048
  6. NORDAZ [Suspect]
     Active Substance: NORDAZEPAM
     Route: 048
     Dates: end: 20160320
  7. CRESTOR [Suspect]
     Active Substance: ROSUVASTATIN CALCIUM
     Route: 048
  8. EFFEXOR LP [Suspect]
     Active Substance: VENLAFAXINE HYDROCHLORIDE
     Route: 048
     Dates: end: 20160320
  9. LARGACTIL [Suspect]
     Active Substance: CHLORPROMAZINE
     Dosage: 50 DROPS PER DAY
     Route: 048
     Dates: end: 20160320
  10. ESOMEPRAZOLE MAGNESIUM. [Suspect]
     Active Substance: ESOMEPRAZOLE MAGNESIUM
     Route: 048
  11. PROPRANOLOL [Suspect]
     Active Substance: PROPRANOLOL\PROPRANOLOL HYDROCHLORIDE
     Route: 048
     Dates: end: 20160320
  12. LEPTICUR [Suspect]
     Active Substance: TROPATEPINE HYDROCHLORIDE
     Route: 048
     Dates: end: 20160320
  13. EFFEXOR LP [Suspect]
     Active Substance: VENLAFAXINE HYDROCHLORIDE
     Route: 048
  14. HALDOL [Suspect]
     Active Substance: HALOPERIDOL
     Dosage: 2 MG/ML, 40 DROPS PER DAY
     Route: 048
     Dates: end: 20160320
  15. NOCTAMIDE [Suspect]
     Active Substance: LORMETAZEPAM
     Route: 048
     Dates: end: 20160320

REACTIONS (3)
  - Pneumonia aspiration [Recovered/Resolved]
  - Coma [Recovered/Resolved]
  - Depressed level of consciousness [Recovered/Resolved]

NARRATIVE: CASE EVENT DATE: 20160320
